FAERS Safety Report 9641208 (Version 3)
Quarter: 2013Q4

REPORT INFORMATION
  Report Type: Spontaneous
  Country: IT (occurrence: IT)
  Receive Date: 20131023
  Receipt Date: 20131210
  Transmission Date: 20140711
  Serious: Yes (Hospitalization, Other)
  Sender: FDA-Public Use
  Company Number: IT-PFIZER INC-2013301666

PATIENT
  Age: 79 Year
  Sex: Female

DRUGS (10)
  1. PANTOPRAZOLE [Suspect]
     Indication: PROPHYLAXIS AGAINST GASTROINTESTINAL ULCER
     Dosage: 20 MG, 1X/DAY
     Route: 048
     Dates: start: 20130901, end: 20131002
  2. ENAPREN [Suspect]
     Indication: HYPERTENSION
     Dosage: 5 MG, 1X/DAY
     Route: 048
     Dates: start: 20130901, end: 20131002
  3. ALLOPURINOL [Suspect]
     Indication: HYPERURICAEMIA
     Dosage: 300 MG, 1X/DAY
     Route: 048
     Dates: start: 20130901, end: 20131001
  4. EUTIROX [Concomitant]
     Dosage: 100 UG, UNK
  5. EUTIROX [Concomitant]
     Dosage: 125 UG, UNK
  6. LANOXIN [Concomitant]
     Dosage: 0.125 MG, UNK
  7. CONGESCOR [Concomitant]
     Dosage: 2.5 MG, UNK
  8. LASIX [Concomitant]
     Dosage: 25 MG, UNK
  9. SINTROM [Concomitant]
     Dosage: UNK
  10. KANRENOL [Concomitant]
     Dosage: 10 MG, UNK

REACTIONS (2)
  - Mucosal inflammation [Recovered/Resolved]
  - Toxic skin eruption [Recovered/Resolved]
